FAERS Safety Report 8004938-8 (Version None)
Quarter: 2011Q4

REPORT INFORMATION
  Report Type: 
  Country: None (occurrence: None)
  Receive Date: 20111223
  Receipt Date: 20111031
  Transmission Date: 20120403
  Serious: Yes (Hospitalization, Other)
  Sender: FDA-Public Use
  Company Number: US-PURDUE-USA-2008-0033424

PATIENT
  Sex: Female

DRUGS (1)
  1. OXYCONTIN [Suspect]
     Indication: PAIN
     Dosage: UNK, SEE TEXT
     Dates: start: 20000401, end: 20031101

REACTIONS (16)
  - ANHEDONIA [None]
  - DELUSIONAL DISORDER, UNSPECIFIED TYPE [None]
  - DRUG WITHDRAWAL SYNDROME [None]
  - CARDIAC FAILURE [None]
  - PAIN [None]
  - DEPRESSION [None]
  - MEMORY IMPAIRMENT [None]
  - DRUG DEPENDENCE [None]
  - MYOCARDIAL INFARCTION [None]
  - OBSESSIVE-COMPULSIVE DISORDER [None]
  - IMPAIRED WORK ABILITY [None]
  - DECREASED APPETITE [None]
  - VOMITING [None]
  - INCORRECT DOSE ADMINISTERED [None]
  - PARANOIA [None]
  - ANXIETY [None]
